FAERS Safety Report 12182816 (Version 1)
Quarter: 2016Q1

REPORT INFORMATION
  Report Type: Spontaneous
  Country: US (occurrence: None)
  Receive Date: 20160315
  Receipt Date: 20160315
  Transmission Date: 20160526
  Serious: Yes (Disabling)
  Sender: FDA-Public Use
  Company Number: None

PATIENT
  Age: 30 Year
  Sex: Male
  Weight: 81.65 kg

DRUGS (1)
  1. BOTOX [Suspect]
     Active Substance: ONABOTULINUMTOXINA
     Indication: MIGRAINE
     Dosage: 300 MG INJECTIONS EVERY 12 WEEKS INTO THE MUSCLE
     Route: 030

REACTIONS (5)
  - Lethargy [None]
  - Nervousness [None]
  - Depersonalisation/derealisation disorder [None]
  - Derealisation [None]
  - Anxiety [None]
